FAERS Safety Report 4991060-8 (Version None)
Quarter: 2006Q2

REPORT INFORMATION
  Report Type: 
  Country: None (occurrence: None)
  Receive Date: 20060503
  Receipt Date: 20051026
  Transmission Date: 20061013
  Serious: Yes (Hospitalization, Other)
  Sender: FDA-Public Use
  Company Number: US-MERCK-0510USA09489

PATIENT
  Age: 49 Year
  Sex: Female
  Weight: 77 kg

DRUGS (46)
  1. VIOXX [Suspect]
     Indication: ARTHRITIS
     Route: 048
     Dates: start: 20000313, end: 20040930
  2. ACIPHEX [Concomitant]
     Indication: GASTROOESOPHAGEAL REFLUX DISEASE
     Route: 065
  3. XANAX [Concomitant]
     Indication: ANXIETY
     Route: 065
     Dates: start: 19980601, end: 20040101
  4. AMBIEN [Concomitant]
     Indication: SLEEP DISORDER
     Route: 065
  5. BEXTRA [Concomitant]
     Route: 065
  6. BONIVA [Concomitant]
     Indication: OSTEOPOROSIS
     Route: 065
  7. CLARITIN [Concomitant]
     Route: 065
  8. COUMADIN [Concomitant]
     Indication: ANTICOAGULANT THERAPY
     Route: 065
  9. DEPAKOTE [Concomitant]
     Indication: CONVULSION
     Route: 065
     Dates: start: 20021201, end: 20030101
  10. DEPAKOTE [Concomitant]
     Indication: MIGRAINE
     Route: 065
     Dates: start: 20021201, end: 20030101
  11. DETROL [Concomitant]
     Indication: HYPERTONIC BLADDER
     Route: 065
  12. ACETAMINOPHEN AND CAFFEINE AND DIHYDROCODEINE BITARTRATE [Concomitant]
     Indication: PAIN
     Route: 065
  13. DICLOFENAC [Concomitant]
     Indication: PAIN
     Route: 065
  14. DITROPAN [Concomitant]
     Indication: HYPERTONIC BLADDER
     Route: 065
  15. EFFEXOR [Concomitant]
     Indication: DEPRESSION
     Route: 065
  16. ESGIC [Concomitant]
     Indication: PAIN
     Route: 065
     Dates: start: 19980101, end: 20040101
  17. ESTRACE [Concomitant]
     Indication: HORMONE REPLACEMENT THERAPY
     Route: 065
  18. FERROUS SULFATE [Concomitant]
     Indication: BLOOD IRON
     Route: 065
  19. PROZAC [Concomitant]
     Route: 065
  20. ACETAMINOPHEN AND HYDROCODONE BITARTRATE [Concomitant]
     Route: 065
  21. TORADOL [Concomitant]
     Route: 065
  22. TORADOL [Concomitant]
     Indication: PAIN
     Route: 065
  23. LESCOL [Concomitant]
     Indication: BLOOD CHOLESTEROL
     Route: 065
     Dates: start: 19990301, end: 20020101
  24. LIPITOR [Concomitant]
     Indication: BLOOD CHOLESTEROL
     Route: 065
  25. LOVENOX [Concomitant]
     Indication: ANTICOAGULANT THERAPY
     Route: 065
  26. PROVERA [Concomitant]
     Indication: HORMONE REPLACEMENT THERAPY
     Route: 065
  27. NITRO-TABL [Concomitant]
     Indication: ANGINA PECTORIS
     Route: 065
  28. PEPCID [Concomitant]
     Indication: GASTROOESOPHAGEAL REFLUX DISEASE
     Route: 065
  29. PLAVIX [Concomitant]
     Indication: ANTICOAGULANT THERAPY
     Route: 065
  30. PRAVACHOL [Concomitant]
     Indication: BLOOD CHOLESTEROL
     Route: 065
     Dates: start: 19990501, end: 20010101
  31. PREDNISONE [Concomitant]
     Indication: INFLAMMATION
     Route: 065
  32. PREMPRO [Concomitant]
     Indication: HORMONE REPLACEMENT THERAPY
     Route: 065
  33. PREVACID [Concomitant]
     Indication: GASTROOESOPHAGEAL REFLUX DISEASE
     Route: 065
  34. ACETAMINOPHEN AND PROPOXYPHENE NAPSYLATE [Concomitant]
     Indication: PAIN
     Route: 065
  35. ZANTAC [Concomitant]
     Indication: GASTROOESOPHAGEAL REFLUX DISEASE
     Route: 065
  36. RELAFEN [Concomitant]
     Indication: PAIN
     Route: 065
  37. RELPAX [Concomitant]
     Indication: MIGRAINE
     Route: 065
  38. SYNALGOS-DC [Concomitant]
     Indication: PAIN
     Route: 065
  39. TICLID [Concomitant]
     Indication: ANTICOAGULANT THERAPY
     Route: 065
  40. TRAZODONE HYDROCHLORIDE [Concomitant]
     Indication: DEPRESSION
     Route: 065
  41. VALIUM [Concomitant]
     Route: 065
     Dates: start: 19980901, end: 20040101
  42. WELLBUTRIN [Concomitant]
     Route: 065
     Dates: start: 20030801
  43. ZITHROMAX [Concomitant]
     Route: 065
  44. ZOMIG [Concomitant]
     Indication: MIGRAINE
     Route: 065
  45. CALAN [Concomitant]
     Route: 065
     Dates: start: 20000101
  46. VERAPAMIL [Concomitant]
     Route: 065
     Dates: start: 20001001, end: 20050101

REACTIONS (21)
  - ANTINUCLEAR ANTIBODY POSITIVE [None]
  - ANTIPHOSPHOLIPID SYNDROME [None]
  - BLOOD CHOLESTEROL INCREASED [None]
  - BLOOD TRIGLYCERIDES INCREASED [None]
  - CAROTID ARTERY STENOSIS [None]
  - CEREBELLAR INFARCTION [None]
  - CEREBRAL INFARCTION [None]
  - CEREBROVASCULAR ACCIDENT [None]
  - EROSIVE OESOPHAGITIS [None]
  - GASTROOESOPHAGEAL REFLUX DISEASE [None]
  - HIATUS HERNIA [None]
  - HOSPITALISATION [None]
  - HYPERTHYROIDISM [None]
  - INTERVERTEBRAL DISC DISORDER [None]
  - LOW DENSITY LIPOPROTEIN INCREASED [None]
  - MELAENA [None]
  - MIGRAINE [None]
  - OVERDOSE [None]
  - POLYTRAUMATISM [None]
  - REFLUX OESOPHAGITIS [None]
  - VISUAL DISTURBANCE [None]
